FAERS Safety Report 5060007-0 (Version None)
Quarter: 2006Q3

REPORT INFORMATION
  Report Type: 
  Country: None (occurrence: None)
  Receive Date: 20060719
  Receipt Date: 20060710
  Transmission Date: 20061208
  Serious: Yes (Hospitalization)
  Sender: FDA-Public Use
  Company Number: 2006001101

PATIENT
  Age: 52 Year
  Sex: Male

DRUGS (2)
  1. TARCEVA [Suspect]
     Indication: METASTATIC BRONCHIAL CARCINOMA
     Dosage: 150 MG (QD) ORAL
     Route: 048
     Dates: start: 20060130, end: 20060430
  2. CLARITHROMYCIN [Concomitant]

REACTIONS (4)
  - DIARRHOEA [None]
  - MALIGNANT NEOPLASM PROGRESSION [None]
  - METASTATIC BRONCHIAL CARCINOMA [None]
  - NORMOCHROMIC NORMOCYTIC ANAEMIA [None]
